FAERS Safety Report 9517080 (Version 1)
Quarter: 2013Q1

REPORT INFORMATION
  Report Type: Spontaneous
  Country: US (occurrence: None)
  Receive Date: 20130305
  Receipt Date: 20130305
  Transmission Date: 20140127
  Serious: Yes (Other)
  Sender: FDA-Public Use
  Company Number: 163-21880-12071914

PATIENT
  Age: 66 Year
  Sex: Female

DRUGS (8)
  1. REVLIMID (LENALIDOMIDE) [Suspect]
     Indication: PLASMA CELL MYELOMA
     Route: 048
     Dates: start: 20120620
  2. DEXAMETHASONE [Concomitant]
  3. LIPITOR (ATORAVASTATIN) [Concomitant]
  4. NEXAVAR (SORAFENIB TOSILATE) [Concomitant]
  5. L CARNITINE (LEVOCARITINE HYDROCHLORIDE) [Concomitant]
  6. GLUTAMIN (LEVOFLUTAMIDE) [Concomitant]
  7. VITAMIN B [Concomitant]
  8. VITAMIN D (ERGOCALCIFEROL) [Concomitant]

REACTIONS (1)
  - Infected fistula [None]
